FAERS Safety Report 4268734-X (Version None)
Quarter: 2004Q1

REPORT INFORMATION
  Report Type: 
  Country: None (occurrence: None)
  Receive Date: 20040112
  Receipt Date: 20031124
  Transmission Date: 20041129
  Serious: Yes (Hospitalization)
  Sender: FDA-Public Use
  Company Number: PHEH2003US10820

PATIENT
  Age: 92 Year
  Sex: Female

DRUGS (6)
  1. EXELON [Suspect]
     Dosage: 1.5 MG, BID
     Route: 048
     Dates: start: 20030101, end: 20031018
  2. DIABETA [Concomitant]
  3. MECLOMEN [Concomitant]
  4. COLACE [Concomitant]
  5. VITAMIN E [Concomitant]
  6. OSCAL [Concomitant]

REACTIONS (11)
  - BLOOD GLUCOSE INCREASED [None]
  - BLOOD SODIUM INCREASED [None]
  - DECUBITUS ULCER [None]
  - HYPONATRAEMIA [None]
  - INFECTION [None]
  - MARKEDLY REDUCED DIETARY INTAKE [None]
  - MENTAL STATUS CHANGES [None]
  - NON-HODGKIN'S LYMPHOMA [None]
  - OEDEMA PERIPHERAL [None]
  - URINARY TRACT INFECTION [None]
  - WHITE BLOOD CELL COUNT INCREASED [None]
